FAERS Safety Report 9138864 (Version 1)
Quarter: 2013Q1

REPORT INFORMATION
  Report Type: Spontaneous
  Country: US (occurrence: None)
  Receive Date: 20130205
  Receipt Date: 20130205
  Transmission Date: 20140127
  Serious: Yes (Death, Hospitalization)
  Sender: FDA-Public Use
  Company Number: DEP_00828_2013

PATIENT
  Age: 40 Year
  Sex: Male
  Weight: 65 kg

DRUGS (4)
  1. GABAPENTIN [Suspect]
     Indication: PRODUCT USED FOR UNKNOWN INDICATION
     Route: 048
  2. AMITRIPTYLINE [Suspect]
     Indication: PRODUCT USED FOR UNKNOWN INDICATION
     Dosage: UP TO 3 G [NOT THE PRESCRIBED AMOUNT] ORAL
     Dates: start: 2011, end: 2011
  3. COCAINE [Suspect]
     Indication: PRODUCT USED FOR UNKNOWN INDICATION
     Route: 048
  4. ETHANOL [Suspect]
     Indication: PRODUCT USED FOR UNKNOWN INDICATION
     Route: 048

REACTIONS (13)
  - Completed suicide [None]
  - Unresponsive to stimuli [None]
  - Blood pressure decreased [None]
  - Heart rate increased [None]
  - Drug screen positive [None]
  - Electrocardiogram QRS complex prolonged [None]
  - Electrocardiogram QT prolonged [None]
  - Agitation [None]
  - Pain [None]
  - Ventricular tachycardia [None]
  - Convulsion [None]
  - Cardio-respiratory arrest [None]
  - Toxicity to various agents [None]
